FAERS Safety Report 8592117-5 (Version None)
Quarter: 2012Q3

REPORT INFORMATION
  Report Type: 
  Country: None (occurrence: None)
  Receive Date: 20120814
  Receipt Date: 20120810
  Transmission Date: 20120928
  Serious: Yes (Hospitalization, Other)
  Sender: FDA-Public Use
  Company Number: US-VERTEX PHARMACEUTICALS INC.-AE-2012-012018

PATIENT
  Sex: Male

DRUGS (3)
  1. INCIVEK [Suspect]
     Indication: HEPATITIS C
     Route: 048
     Dates: start: 20120206, end: 20120430
  2. PEGASYS [Concomitant]
     Indication: HEPATITIS C
     Dates: start: 20120206, end: 20120723
  3. RIBAVIRIN [Concomitant]
     Indication: HEPATITIS C
     Dates: start: 20120206, end: 20120723

REACTIONS (3)
  - ALOPECIA [None]
  - ANAEMIA [None]
  - URINARY TRACT INFECTION [None]
